FAERS Safety Report 19589077 (Version 1)
Quarter: 2021Q3

REPORT INFORMATION
  Report Type: Spontaneous
  Country: US (occurrence: US)
  Receive Date: 20210721
  Receipt Date: 20210721
  Transmission Date: 20211014
  Serious: No
  Sender: FDA-Public Use
  Company Number: US-DRREDDYS-SPO/USA/21/0137643

PATIENT
  Age: 61 Year
  Sex: Female
  Weight: 97.52 kg

DRUGS (3)
  1. CIPROFLOXACIN AND DEXAMETHASONE [Suspect]
     Active Substance: CIPROFLOXACIN HYDROCHLORIDE\DEXAMETHASONE
     Indication: EAR INFECTION
  2. AUGMENTIN AMOX KCLAB 875 MG [Concomitant]
     Indication: EAR INFECTION
     Dosage: ONE TABLET EVERY 12 HOURS FOR NEXT 10 DAYS
  3. CIPROFLOXACIN AND DEXAMETHASONE [Suspect]
     Active Substance: CIPROFLOXACIN HYDROCHLORIDE\DEXAMETHASONE
     Indication: EAR PAIN

REACTIONS (2)
  - Drug ineffective [Unknown]
  - Product quality issue [Unknown]
